FAERS Safety Report 8817577 (Version 1)
Quarter: 2012Q4

REPORT INFORMATION
  Report Type: 
  Country: CA (occurrence: CA)
  Receive Date: 20121001
  Receipt Date: 20121001
  Transmission Date: 20130627
  Serious: Yes (Disabling)
  Sender: FDA-Public Use
  Company Number: CA-SANOFI-AVENTIS-2012SA051658

PATIENT
  Age: 76 Year
  Sex: Female

DRUGS (7)
  1. LANTUS SOLOSTAR [Suspect]
     Indication: DIABETES
     Dosage: Dose:20 unit(s)
     Route: 058
     Dates: start: 20120530
  2. SOLOSTAR [Suspect]
     Indication: DEVICE THERAPY
     Dates: start: 20120530
  3. DIAMICRON [Concomitant]
     Route: 048
  4. JANUVIA [Concomitant]
  5. PLAVIX [Concomitant]
  6. ROSUVASTATIN [Concomitant]
  7. AMLODIPINE [Concomitant]

REACTIONS (1)
  - Abdominal distension [Not Recovered/Not Resolved]
